FAERS Safety Report 13005855 (Version 2)
Quarter: 2019Q4

REPORT INFORMATION
  Report Type: Spontaneous
  Country: US (occurrence: US)
  Receive Date: 20161207
  Receipt Date: 20191021
  Transmission Date: 20200122
  Serious: Yes (Death, Other)
  Sender: FDA-Public Use
  Company Number: US-PFIZER INC-2016567920

PATIENT
  Age: 48 Year
  Sex: Male

DRUGS (3)
  1. VIAGRA [Suspect]
     Active Substance: SILDENAFIL CITRATE
     Indication: ERECTILE DYSFUNCTION
     Dosage: 50 MG, 2X/WEEK
     Route: 048
     Dates: start: 20011011, end: 20031030
  2. VIAGRA [Suspect]
     Active Substance: SILDENAFIL CITRATE
     Dosage: 100 MG, 2X/WEEK
     Route: 048
     Dates: start: 20031126, end: 20071121
  3. VIAGRA [Suspect]
     Active Substance: SILDENAFIL CITRATE
     Dosage: 100 MG, 2X/WEEK
     Route: 048
     Dates: start: 20100902, end: 20101202

REACTIONS (8)
  - Metastases to pancreas [Unknown]
  - Metastases to retroperitoneum [Unknown]
  - Metastatic malignant melanoma [Fatal]
  - Metastases to central nervous system [Unknown]
  - Metastases to peritoneum [Unknown]
  - Metastases to spleen [Unknown]
  - Metastases to lung [Unknown]
  - Metastases to liver [Unknown]

NARRATIVE: CASE EVENT DATE: 20101209
